FAERS Safety Report 4616074-9 (Version None)
Quarter: 2005Q1

REPORT INFORMATION
  Report Type: 
  Country: None (occurrence: None)
  Receive Date: 20050321
  Receipt Date: 20050311
  Transmission Date: 20050727
  Serious: Yes (Hospitalization)
  Sender: FDA-Public Use
  Company Number: 2005-03-0784

PATIENT
  Age: 50 Year
  Sex: Female

DRUGS (2)
  1. PEG-INTERFERON INJECTABLE [Suspect]
     Indication: HEPATITIS C
     Dosage: SUBCUTANEOUS
     Route: 058
     Dates: start: 20020901, end: 20030101
  2. RIBAVIRIN [Suspect]
     Indication: HEPATITIS C
     Dosage: ORAL
     Route: 048
     Dates: start: 20020901, end: 20030101

REACTIONS (8)
  - ALVEOLITIS ALLERGIC [None]
  - CD4/CD8 RATIO DECREASED [None]
  - CHILLS [None]
  - DYSPNOEA [None]
  - LYMPHOCYTOSIS [None]
  - PRODUCTIVE COUGH [None]
  - PYREXIA [None]
  - RALES [None]
